FAERS Safety Report 25956521 (Version 5)
Quarter: 2025Q4

REPORT INFORMATION
  Report Type: Spontaneous
  Country: AU (occurrence: AU)
  Receive Date: 20251024
  Receipt Date: 20251117
  Transmission Date: 20260118
  Serious: Yes (Other)
  Sender: INSUD PHARMA
  Company Number: AU-EXELTIS PHARMACEUTICAL HOLDING, S.L.-2510AU08563

PATIENT
  Age: 45 Year
  Sex: Female

DRUGS (3)
  1. DROSPIRENONE [Suspect]
     Active Substance: DROSPIRENONE
     Indication: Pelvic pain
     Dosage: 4 MILLIGRAM, QD
     Route: 048
     Dates: start: 20250925
  2. DROSPIRENONE [Suspect]
     Active Substance: DROSPIRENONE
     Indication: Adenomyosis
  3. DIENOGEST [Suspect]
     Active Substance: DIENOGEST
     Indication: Pelvic pain
     Dosage: 1 DOSAGE FORM
     Dates: start: 20250922

REACTIONS (6)
  - Hepatitis acute [Not Recovered/Not Resolved]
  - Condition aggravated [Not Recovered/Not Resolved]
  - Chromaturia [Unknown]
  - Nausea [Recovered/Resolved]
  - Vomiting [Recovered/Resolved]
  - Product prescribing issue [Unknown]

NARRATIVE: CASE EVENT DATE: 20250101
